FAERS Safety Report 8862490 (Version 1)
Quarter: 2012Q4

REPORT INFORMATION
  Report Type: 
  Country: US (occurrence: US)
  Receive Date: 20121026
  Receipt Date: 20121026
  Transmission Date: 20130627
  Serious: No
  Sender: FDA-Public Use
  Company Number: US-ALLERGAN-1211257US

PATIENT
  Age: 70 Year
  Sex: Female

DRUGS (4)
  1. ALPHAGAN [Suspect]
     Indication: GLAUCOMA
     Dosage: 1 Gtt, qd
     Route: 047
     Dates: start: 20120815
  2. TRUSOPT [Concomitant]
     Indication: GLAUCOMA
     Dosage: 1 UNK, UNK
     Route: 047
  3. XALATAN [Concomitant]
     Indication: GLAUCOMA
     Route: 047
  4. ZESTRIL [Concomitant]
     Indication: BLOOD PRESSURE HIGH
     Route: 048

REACTIONS (2)
  - Scleral discolouration [Unknown]
  - Instillation site erythema [Unknown]
